FAERS Safety Report 9672142 (Version 1)
Quarter: 2013Q4

REPORT INFORMATION
  Report Type: Report from Study
  Country: JP (occurrence: JP)
  Receive Date: 20131106
  Receipt Date: 20131106
  Transmission Date: 20140711
  Serious: Yes (Death, Other)
  Sender: FDA-Public Use
  Company Number: JP-TAKEDA-2013TJP002488

PATIENT
  Age: 80 Year
  Sex: Male
  Weight: 77 kg

DRUGS (5)
  1. ALOGLIPTIN [Suspect]
     Indication: TYPE 2 DIABETES MELLITUS
     Dosage: 25 MG, QD
     Route: 048
     Dates: start: 20110922, end: 20120228
  2. SEIBULE [Concomitant]
     Indication: TYPE 2 DIABETES MELLITUS
     Dosage: 25 MG, 1 DAYS
     Route: 048
  3. NORVASC [Concomitant]
     Route: 048
  4. EXFORGE [Concomitant]
     Route: 048
  5. CARDENALIN [Concomitant]
     Route: 048

REACTIONS (2)
  - Pancreatic carcinoma [Fatal]
  - Condition aggravated [Fatal]
